FAERS Safety Report 11574895 (Version 1)
Quarter: 2015Q3

REPORT INFORMATION
  Report Type: Spontaneous
  Country: US (occurrence: US)
  Receive Date: 20150916
  Receipt Date: 20150916
  Transmission Date: 20151125
  Serious: No
  Sender: FDA-Public Use
  Company Number: US-ELI_LILLY_AND_COMPANY-US200911004301

PATIENT
  Age: 74 Year
  Sex: Female

DRUGS (2)
  1. MIACALCIN [Concomitant]
     Active Substance: CALCITONIN SALMON
  2. FORTEO [Suspect]
     Active Substance: TERIPARATIDE

REACTIONS (4)
  - Gingival pain [Unknown]
  - Headache [Unknown]
  - Facial pain [Unknown]
  - Oral pain [Unknown]

NARRATIVE: CASE EVENT DATE: 2008
